FAERS Safety Report 6684523-0 (Version None)
Quarter: 2010Q2

REPORT INFORMATION
  Report Type: 
  Country: None (occurrence: None)
  Receive Date: 20100416
  Receipt Date: 20100414
  Transmission Date: 20101027
  Serious: Yes (Hospitalization)
  Sender: FDA-Public Use
  Company Number: IT-ROCHE-686696

PATIENT
  Sex: Female

DRUGS (6)
  1. AVASTIN [Suspect]
     Indication: COLON CANCER
     Dosage: FREQUENCY: CYCLE
     Route: 042
     Dates: start: 20091230, end: 20091230
  2. FLUOROURACIL [Suspect]
     Indication: COLON CANCER
     Dosage: FREQUENCY: CYCLE, DRUG REPORTED: FLUORURACILE TEVA
     Route: 042
     Dates: start: 20091229, end: 20091229
  3. FLUOROURACIL [Suspect]
     Route: 042
     Dates: start: 20100202
  4. IRINOTECAN HYDROCHLORIDE [Suspect]
     Indication: COLON CANCER
     Dosage: DRUG REPORTED: IRINOTECAN HOSPIRA, FREQUENCY: CYCLE
     Route: 042
     Dates: start: 20091229, end: 20091229
  5. ATENOLOL [Concomitant]
     Indication: HYPERTENSION
     Route: 048
     Dates: start: 20091209, end: 20091231
  6. LEVOFOLENE [Concomitant]
     Indication: COLON CANCER
     Route: 042
     Dates: start: 20091229, end: 20100202

REACTIONS (1)
  - ANGINA PECTORIS [None]
